FAERS Safety Report 24864208 (Version 1)
Quarter: 2025Q1

REPORT INFORMATION
  Report Type: Spontaneous
  Country: CZ (occurrence: CZ)
  Receive Date: 20250120
  Receipt Date: 20250120
  Transmission Date: 20250409
  Serious: Yes (Hospitalization)
  Sender: BAUSCH AND LOMB
  Company Number: CZ-MLMSERVICE-20250113-PI357007-00117-3

PATIENT
  Age: 57 Year
  Sex: Male

DRUGS (3)
  1. DEXAMETHASONE [Suspect]
     Active Substance: DEXAMETHASONE
     Indication: COVID-19 pneumonia
     Route: 042
     Dates: start: 2021
  2. DEXAMETHASONE [Suspect]
     Active Substance: DEXAMETHASONE
     Route: 065
     Dates: start: 2021
  3. CLARITHROMYCIN [Concomitant]
     Active Substance: CLARITHROMYCIN
     Indication: COVID-19 pneumonia
     Route: 048
     Dates: start: 2021

REACTIONS (2)
  - Acute psychosis [Recovering/Resolving]
  - Delusion [Recovering/Resolving]

NARRATIVE: CASE EVENT DATE: 20210101
